FAERS Safety Report 9457393 (Version 1)
Quarter: 2013Q3

REPORT INFORMATION
  Report Type: Spontaneous
  Country: CA (occurrence: None)
  Receive Date: 20130812
  Receipt Date: 20130812
  Transmission Date: 20140515
  Serious: Yes (Other)
  Sender: FDA-Public Use
  Company Number: B0914425A

PATIENT
  Age: 5 Month
  Sex: 0

DRUGS (1)
  1. MELPHALAN [Suspect]
     Indication: RETINOBLASTOMA
     Dosage: RIGHT EYE

REACTIONS (4)
  - Retinal vascular disorder [None]
  - Optic atrophy [None]
  - Retinal ischaemia [None]
  - Retinal infiltrates [None]
